FAERS Safety Report 9860502 (Version 1)
Quarter: 2014Q1

REPORT INFORMATION
  Report Type: Spontaneous
  Country: US (occurrence: US)
  Receive Date: 20140202
  Receipt Date: 20140202
  Transmission Date: 20141002
  Serious: Yes (Death)
  Sender: FDA-Public Use
  Company Number: CHPA2014US001794

PATIENT
  Age: 53 Year
  Sex: Female

DRUGS (8)
  1. ACETAMINOPHEN (PARACETAMOL) [Suspect]
     Route: 048
  2. QUETIAPINE [Suspect]
     Route: 048
  3. FENTANYL [Suspect]
     Route: 048
  4. HYDROCODONE [Suspect]
     Route: 048
  5. DIAZEPAM [Suspect]
     Route: 048
  6. TRAZODONE [Suspect]
     Route: 048
  7. ZOLPIDEM [Suspect]
     Route: 048
  8. COCAINE [Suspect]
     Route: 048

REACTIONS (1)
  - Completed suicide [Fatal]
